FAERS Safety Report 5803005-9 (Version None)
Quarter: 2008Q2

REPORT INFORMATION
  Report Type: 
  Country: None (occurrence: None)
  Receive Date: 20080625
  Receipt Date: 20070917
  Transmission Date: 20081010
  Serious: Yes (Hospitalization)
  Sender: FDA-Public Use
  Company Number: DSU-2007-00617

PATIENT

DRUGS (1)
  1. BENICAR [Suspect]
     Indication: DRUG USE FOR UNKNOWN INDICATION
     Dosage: 40 MG (40 MG, QD), PER ORAL
     Route: 048

REACTIONS (1)
  - BLOOD POTASSIUM INCREASED [None]
